FAERS Safety Report 6283892-3 (Version None)
Quarter: 2009Q3

REPORT INFORMATION
  Report Type: 
  Country: None (occurrence: None)
  Receive Date: 20090723
  Receipt Date: 20090723
  Transmission Date: 20100115
  Serious: Yes (Hospitalization)
  Sender: FDA-Public Use
  Company Number: None

PATIENT
  Sex: Female
  Weight: 63.5036 kg

DRUGS (2)
  1. PRISTIQ [Suspect]
     Indication: ARTIFICIAL MENOPAUSE
     Dosage: 1 TABLET ONCE PER DAY PO
     Route: 048
     Dates: start: 20090711, end: 20090713
  2. PRISTIQ [Suspect]
     Indication: HOT FLUSH
     Dosage: 1 TABLET ONCE PER DAY PO
     Route: 048
     Dates: start: 20090711, end: 20090713

REACTIONS (7)
  - ASTHENIA [None]
  - BLOOD PRESSURE INCREASED [None]
  - DYSPNOEA [None]
  - HEART RATE INCREASED [None]
  - NAUSEA [None]
  - PALPITATIONS [None]
  - SENSATION OF PRESSURE [None]
